FAERS Safety Report 6649986-5 (Version None)
Quarter: 2010Q1

REPORT INFORMATION
  Report Type: 
  Country: None (occurrence: None)
  Receive Date: 20100324
  Receipt Date: 20100324
  Transmission Date: 20100710
  Serious: Yes (Disabling)
  Sender: FDA-Public Use
  Company Number: None

PATIENT
  Sex: Male
  Weight: 83.9154 kg

DRUGS (1)
  1. HUMIRA [Suspect]
     Dosage: 1 INJECTION 1X2 WKS INTRA MUSCLE 030
     Route: 030

REACTIONS (1)
  - HYPOAESTHESIA [None]
